FAERS Safety Report 7170307-6 (Version None)
Quarter: 2010Q4

REPORT INFORMATION
  Report Type: 
  Country: None (occurrence: None)
  Receive Date: 20101217
  Receipt Date: 20101110
  Transmission Date: 20110411
  Serious: No
  Sender: FDA-Public Use
  Company Number: A0891834A

PATIENT
  Age: 40 Year
  Sex: Female

DRUGS (4)
  1. LAMICTAL [Suspect]
     Dosage: 50MG PER DAY
     Route: 048
     Dates: start: 20101001, end: 20101102
  2. KEPPRA [Concomitant]
  3. CLONAZEPAM [Concomitant]
  4. ANTIDEPRESSANT [Concomitant]

REACTIONS (1)
  - RASH ERYTHEMATOUS [None]
